FAERS Safety Report 22888789 (Version 2)
Quarter: 2023Q4

REPORT INFORMATION
  Report Type: Spontaneous
  Country: US (occurrence: US)
  Receive Date: 20230831
  Receipt Date: 20231003
  Transmission Date: 20240110
  Serious: No
  Sender: FDA-Public Use
  Company Number: US-BIOVITRUM-2023-US-014295

PATIENT
  Age: 8 Month
  Sex: Male

DRUGS (2)
  1. SYNAGIS [Suspect]
     Active Substance: PALIVIZUMAB
     Indication: Premature baby
     Dosage: 74.85 MG EVERY 28 DAYS-30 DAYS
     Route: 030
     Dates: start: 20230703, end: 20230828
  2. SYNAGIS [Suspect]
     Active Substance: PALIVIZUMAB
     Dosage: 74.85 MG EVERY 28 DAYS-30 DAYS
     Route: 030
     Dates: start: 20230731

REACTIONS (3)
  - Nasal congestion [Unknown]
  - Influenza [Unknown]
  - Nasopharyngitis [Unknown]

NARRATIVE: CASE EVENT DATE: 20230827
